FAERS Safety Report 15025172 (Version 2)
Quarter: 2018Q2

REPORT INFORMATION
  Report Type: Spontaneous
  Country: SE (occurrence: SE)
  Receive Date: 20180618
  Receipt Date: 20180628
  Transmission Date: 20180711
  Serious: Yes (Hospitalization)
  Sender: FDA-Public Use
  Company Number: SE-GEHC-2018CSU002351

PATIENT

DRUGS (1)
  1. OMNIPAQUE [Suspect]
     Active Substance: IOHEXOL
     Indication: DYSPNOEA
     Dosage: 90 UNK, SINGLE
     Route: 042
     Dates: start: 20180504, end: 20180504

REACTIONS (4)
  - Urticaria [Recovered/Resolved]
  - Lip swelling [Recovered/Resolved]
  - Sneezing [Recovered/Resolved]
  - Ear swelling [Recovered/Resolved]

NARRATIVE: CASE EVENT DATE: 20180504
